FAERS Safety Report 4745116-5 (Version None)
Quarter: 2005Q3

REPORT INFORMATION
  Report Type: 
  Country: None (occurrence: None)
  Receive Date: 20050815
  Receipt Date: 20040906
  Transmission Date: 20060218
  Serious: Yes (Life-Threatening, Hospitalization)
  Sender: FDA-Public Use
  Company Number: NO-ROCHE-379975

PATIENT
  Age: 51 Year
  Sex: Male

DRUGS (51)
  1. DACLIZUMAB [Suspect]
     Route: 042
     Dates: start: 20040611
  2. DACLIZUMAB [Suspect]
     Route: 042
     Dates: start: 20040618
  3. MYCOPHENOLATE MOFETIL [Suspect]
     Route: 042
     Dates: start: 20040610, end: 20040614
  4. MYCOPHENOLATE MOFETIL [Suspect]
     Route: 048
     Dates: start: 20040615, end: 20050310
  5. TACROLIMUS [Suspect]
     Route: 048
     Dates: start: 20040624
  6. TACROLIMUS [Suspect]
     Route: 048
     Dates: start: 20040615, end: 20040616
  7. TACROLIMUS [Suspect]
     Route: 048
     Dates: start: 20040617, end: 20040617
  8. TACROLIMUS [Suspect]
     Route: 048
     Dates: start: 20040618, end: 20040618
  9. TACROLIMUS [Suspect]
     Route: 048
     Dates: start: 20040619, end: 20040619
  10. TACROLIMUS [Suspect]
     Route: 048
     Dates: start: 20040620, end: 20040620
  11. TACROLIMUS [Suspect]
     Route: 048
     Dates: start: 20040621, end: 20040621
  12. TACROLIMUS [Suspect]
     Route: 048
     Dates: start: 20040622, end: 20040623
  13. TACROLIMUS [Suspect]
     Dosage: DOSAGE ADJUSTED TO REACH PREDEFINED TARGET LEVELS.
     Route: 048
     Dates: start: 20040624, end: 20050614
  14. METHYLPREDNISOLONE 16MG TAB [Suspect]
     Route: 065
     Dates: start: 20040610, end: 20040610
  15. METHYLPREDNISOLONE 16MG TAB [Suspect]
     Route: 065
     Dates: start: 20040611, end: 20040612
  16. METHYLPREDNISOLONE 16MG TAB [Suspect]
     Route: 065
     Dates: start: 20040613, end: 20040613
  17. PREDNISOLONE [Suspect]
     Route: 065
     Dates: start: 20040614, end: 20040614
  18. PREDNISOLONE [Suspect]
     Route: 065
     Dates: start: 20040615, end: 20040615
  19. PREDNISOLONE [Suspect]
     Route: 065
     Dates: start: 20040616, end: 20040616
  20. PREDNISOLONE [Suspect]
     Route: 065
     Dates: start: 20040617, end: 20040617
  21. PREDNISOLONE [Suspect]
     Dosage: DOSAGE TAPERED ACCRODING TO LOCAL PROTOCOL.
     Route: 065
     Dates: start: 20040618, end: 20040815
  22. PREDNISOLONE [Suspect]
     Dosage: ADVERSE EVENT/TOXICITY.
     Route: 065
     Dates: start: 20040816, end: 20040911
  23. PREDNISOLONE [Suspect]
     Dosage: DOSAGE TAPERED ACCORDING TO LOCAL PROTOCOL.
     Route: 065
     Dates: start: 20040912, end: 20050310
  24. BACTRIM [Concomitant]
     Route: 065
     Dates: start: 20040612
  25. MEROPENEM [Concomitant]
     Indication: INFECTION PROPHYLAXIS
     Dates: start: 20040610, end: 20040811
  26. FLUNITRAZEPAM [Concomitant]
     Route: 065
     Dates: start: 20040616, end: 20040628
  27. DALTEPARIN [Concomitant]
     Indication: THROMBOSIS PROPHYLAXIS
     Dates: start: 20040611, end: 20040816
  28. INSULIN [Concomitant]
     Indication: DIABETES MELLITUS
     Dates: start: 20030615
  29. PANTOPRAZOL [Concomitant]
     Dates: start: 20040611, end: 20040805
  30. PROMETAZIN [Concomitant]
     Dates: start: 20040614, end: 20040615
  31. PARACETAMOL [Concomitant]
     Indication: PAIN
     Dates: start: 20040614
  32. AMPHOTERICIN B [Concomitant]
     Indication: ORAL FUNGAL INFECTION
     Dates: start: 20040620, end: 20040623
  33. FLUCONAZOLE [Concomitant]
     Indication: FUNGAL INFECTION
     Dates: start: 20040620, end: 20040915
  34. FUROSEMIDE [Concomitant]
     Dates: start: 20040622, end: 20040807
  35. ASPIRIN [Concomitant]
     Indication: THROMBOSIS PROPHYLAXIS
     Dates: start: 20040623
  36. MIRTAZAPINE [Concomitant]
     Indication: SEDATION
     Dates: start: 20040629
  37. CEFOTAXIM [Concomitant]
     Indication: INFECTION
     Dates: start: 20040703, end: 20040714
  38. METRONIDAZOLE [Concomitant]
     Indication: INFECTION
     Dates: start: 20040705, end: 20040706
  39. RANITIDINE HCL [Concomitant]
     Dates: start: 20040805
  40. LEVOMEPROMAZIN [Concomitant]
     Dates: start: 20040614, end: 20040628
  41. OXAZEPAM [Concomitant]
     Dates: start: 20040705
  42. PARALGIN FORTE [Concomitant]
     Dates: start: 20040811, end: 20040816
  43. ZOLPIDEM [Concomitant]
     Indication: SLEEP DISORDER
     Dates: start: 20040609, end: 20040614
  44. DIAZEPAM [Concomitant]
     Dates: start: 20040612, end: 20040615
  45. ADRENALINE [Concomitant]
     Indication: BLOOD PRESSURE
     Dates: start: 20040610, end: 20040610
  46. POTASSIUM CHLORIDE [Concomitant]
     Indication: BLOOD POTASSIUM
     Dates: start: 20040610, end: 20040610
  47. MIDAZOLAM [Concomitant]
     Indication: SEDATIVE THERAPY
     Dates: start: 20040610, end: 20040611
  48. KETOBEMIDON [Concomitant]
     Dates: start: 20040612, end: 20040808
  49. ALIMEMAZIN [Concomitant]
     Dates: start: 20040613, end: 20040613
  50. PROPOFOL [Concomitant]
     Indication: SEDATIVE THERAPY
     Dates: start: 20040612, end: 20040612
  51. ZOPICLON [Concomitant]
     Dates: start: 20040812, end: 20040812

REACTIONS (9)
  - ABSCESS [None]
  - DRUG TOXICITY [None]
  - ENTEROCOCCAL INFECTION [None]
  - HEPATIC ARTERY ANEURYSM [None]
  - HYPOTENSION [None]
  - IMPAIRED HEALING [None]
  - NECROSIS [None]
  - PERITONITIS [None]
  - POST PROCEDURAL BILE LEAK [None]
